FAERS Safety Report 7708909-8 (Version None)
Quarter: 2011Q3

REPORT INFORMATION
  Report Type: 
  Country: None (occurrence: None)
  Receive Date: 20110819
  Receipt Date: 20110817
  Transmission Date: 20111222
  Serious: Yes (Disabling, Other)
  Sender: FDA-Public Use
  Company Number: TRP_07902_2011

PATIENT

DRUGS (2)
  1. PEGYLATED INTERFERON ALFA-2A (PEGYLATED INTERFERON-ALFA-2A) [Suspect]
     Indication: HEPATITIS C
     Dosage: (DF)
  2. RIBAVIRIN [Suspect]
     Indication: HEPATITIS C
     Dosage: (DF)

REACTIONS (2)
  - RETINAL VEIN OCCLUSION [None]
  - VISUAL ACUITY REDUCED [None]
